FAERS Safety Report 18088939 (Version 3)
Quarter: 2021Q3

REPORT INFORMATION
  Report Type: Report from Study
  Country: None (occurrence: CH)
  Receive Date: 20200730
  Receipt Date: 20210715
  Transmission Date: 20211014
  Serious: Yes (Hospitalization)
  Sender: FDA-Public Use
  Company Number: CH-ABBVIE-20K-151-3258408-00

PATIENT
  Age: 68 Year
  Sex: Male

DRUGS (6)
  1. DUODOPA [Suspect]
     Active Substance: CARBIDOPA\LEVODOPA
     Indication: PARKINSON^S DISEASE
     Route: 050
     Dates: start: 20170703, end: 20180601
  2. DUODOPA [Suspect]
     Active Substance: CARBIDOPA\LEVODOPA
     Dosage: MD: 10 ML, CRD: 3.8 ML/H, CRN: 0.0 ML/H, ED: 2.5 ML
     Route: 050
     Dates: start: 20210125, end: 20210623
  3. DUODOPA [Suspect]
     Active Substance: CARBIDOPA\LEVODOPA
     Dosage: M.D: 10 ML, C.D RATE DAY: 3.7 ML/H, C.D RATE NIGHT: 0 ML/H, E.D : 1.8 ML, 16 H THERAPY
     Route: 050
     Dates: start: 20191210
  4. DUODOPA [Suspect]
     Active Substance: CARBIDOPA\LEVODOPA
     Dosage: M.D: 10 ML, C.D RATE DAY: 3.6 ML/H, C.D RATE NIGHT: 0 ML/H, E.D: 1.8 ML, 16 H THERAPY
     Route: 050
     Dates: start: 20180601, end: 20191210
  5. DUODOPA [Suspect]
     Active Substance: CARBIDOPA\LEVODOPA
     Dosage: MD: 10 ML, CRD: 3.7 ML/H, CRN: 0.0 ML/H, ED: 1.5 ML
     Route: 050
     Dates: start: 20210707
  6. DUODOPA [Suspect]
     Active Substance: CARBIDOPA\LEVODOPA
     Dosage: MD: 10 ML, CRD: 3.6 ML/H, CRN: 0.0 ML/H, ED: 1.5 ML
     Route: 050
     Dates: start: 20210623, end: 20210707

REACTIONS (8)
  - Medical device site pain [Recovered/Resolved]
  - Therapeutic response decreased [Not Recovered/Not Resolved]
  - Parkinson^s disease [Recovering/Resolving]
  - Freezing phenomenon [Recovering/Resolving]
  - Device connection issue [Unknown]
  - Dyskinesia [Recovering/Resolving]
  - Hyperkinesia [Unknown]
  - Device kink [Recovered/Resolved]

NARRATIVE: CASE EVENT DATE: 202001
